FAERS Safety Report 10779515 (Version 1)
Quarter: 2015Q1

REPORT INFORMATION
  Report Type: Spontaneous
  Country: US (occurrence: None)
  Receive Date: 20150206
  Receipt Date: 20150206
  Transmission Date: 20150721
  Serious: Yes (Death)
  Sender: FDA-Public Use
  Company Number: None

PATIENT
  Age: 75 Year
  Sex: Male
  Weight: 104 kg

DRUGS (4)
  1. ALLOPURINOL. [Concomitant]
     Active Substance: ALLOPURINOL
  2. RITUXAN [Concomitant]
     Active Substance: RITUXIMAB
  3. RITUXIMAB 50ML VIAL = 500MG GENENTECH [Suspect]
     Active Substance: RITUXIMAB
     Indication: LYMPHOMA
     Dosage: INFUSION OVER 6 HR
     Route: 042
  4. HYDRALAZINE [Concomitant]
     Active Substance: HYDRALAZINE HYDROCHLORIDE

REACTIONS (3)
  - Feeling hot [None]
  - Cardio-respiratory arrest [None]
  - Infusion related reaction [None]

NARRATIVE: CASE EVENT DATE: 20150130
